FAERS Safety Report 26199655 (Version 1)
Quarter: 2025Q4

REPORT INFORMATION
  Report Type: Spontaneous
  Country: US (occurrence: US)
  Receive Date: 20251225
  Receipt Date: 20251225
  Transmission Date: 20260117
  Serious: Yes (Other)
  Sender: JOHNSON AND JOHNSON
  Company Number: US-JNJFOC-20251217306

PATIENT
  Age: 52 Year
  Sex: Female

DRUGS (5)
  1. INVEGA SUSTENNA [Suspect]
     Active Substance: PALIPERIDONE PALMITATE
     Indication: Dissociative identity disorder
     Route: 030
  2. INVEGA SUSTENNA [Suspect]
     Active Substance: PALIPERIDONE PALMITATE
     Indication: Bipolar disorder
  3. INVEGA SUSTENNA [Suspect]
     Active Substance: PALIPERIDONE PALMITATE
  4. INVEGA [Suspect]
     Active Substance: PALIPERIDONE
     Indication: Dissociative identity disorder
     Route: 048
  5. INVEGA [Suspect]
     Active Substance: PALIPERIDONE
     Indication: Bipolar disorder

REACTIONS (13)
  - Cerebrovascular accident [Unknown]
  - Cerebral haemorrhage [Unknown]
  - Syncope [Unknown]
  - Aneurysm [Unknown]
  - Heart rate increased [Unknown]
  - Tremor [Unknown]
  - Paraesthesia [Unknown]
  - Headache [Unknown]
  - Arthralgia [Unknown]
  - Libido decreased [Unknown]
  - Weight increased [Unknown]
  - Off label use [Unknown]
  - Dizziness [Unknown]

NARRATIVE: CASE EVENT DATE: 20251111
